FAERS Safety Report 13070463 (Version 2)
Quarter: 2017Q1

REPORT INFORMATION
  Report Type: Report from Study
  Country: US (occurrence: US)
  Receive Date: 20161229
  Receipt Date: 20170213
  Transmission Date: 20170428
  Serious: Yes (Other)
  Sender: FDA-Public Use
  Company Number: US-ROCHE-707395

PATIENT
  Sex: Female

DRUGS (2)
  1. DOXORUBICIN [Suspect]
     Active Substance: DOXORUBICIN
     Indication: OVARIAN EPITHELIAL CANCER RECURRENT
     Route: 065
  2. BEVACIZUMAB [Suspect]
     Active Substance: BEVACIZUMAB
     Indication: OVARIAN EPITHELIAL CANCER RECURRENT
     Dosage: STARTED FROM CYCLE 2
     Route: 065

REACTIONS (4)
  - Ejection fraction decreased [Unknown]
  - Palmar-plantar erythrodysaesthesia syndrome [Unknown]
  - Neutropenia [Unknown]
  - Haematotoxicity [Unknown]
